FAERS Safety Report 9542980 (Version 2)
Quarter: 2014Q1

REPORT INFORMATION
  Report Type: Spontaneous
  Country: US (occurrence: None)
  Receive Date: 20130524
  Receipt Date: 20130724
  Transmission Date: 20141002
  Serious: No
  Sender: FDA-Public Use
  Company Number: PHEH2012US025619

PATIENT
  Age: 46 Year
  Sex: Female
  Weight: 65.8 kg

DRUGS (4)
  1. GILENYA [Suspect]
     Indication: MULTIPLE SCLEROSIS
     Route: 048
     Dates: start: 20120815
  2. VENTOLIN HFA [Concomitant]
  3. TRAMADOL HCL [Concomitant]
  4. ALEVE (NAPROXEN SODIUM) [Concomitant]

REACTIONS (10)
  - Hypoaesthesia [None]
  - Fatigue [None]
  - Influenza [None]
  - Paraesthesia [None]
  - Ear pain [None]
  - Oropharyngeal pain [None]
  - Pyrexia [None]
  - Headache [None]
  - Somnolence [None]
  - Asthenia [None]
